FAERS Safety Report 8301611-3 (Version None)
Quarter: 2012Q2

REPORT INFORMATION
  Report Type: 
  Country: None (occurrence: None)
  Receive Date: 20120420
  Receipt Date: 20120411
  Transmission Date: 20120825
  Serious: Yes (Hospitalization)
  Sender: FDA-Public Use
  Company Number: CA-ELI_LILLY_AND_COMPANY-CA201204003479

PATIENT
  Age: 47 Year
  Sex: Male
  Weight: 63.492 kg

DRUGS (1)
  1. ALIMTA [Suspect]
     Dosage: 850 MG, ONCE EVERY 3WEEKS
     Route: 042

REACTIONS (3)
  - DYSPNOEA [None]
  - LUNG DISORDER [None]
  - THORACIC CAVITY DRAINAGE [None]
